FAERS Safety Report 9882991 (Version 1)
Quarter: 2014Q1

REPORT INFORMATION
  Report Type: Spontaneous
  Country: US (occurrence: None)
  Receive Date: 20140205
  Receipt Date: 20140205
  Transmission Date: 20141002
  Serious: Yes (Hospitalization)
  Sender: FDA-Public Use
  Company Number: QPCR20140042

PATIENT
  Age: 22 Year
  Sex: Male

DRUGS (1)
  1. OPANA ER [Suspect]
     Indication: DRUG ABUSE
     Route: 042

REACTIONS (5)
  - Microangiopathic haemolytic anaemia [None]
  - Drug abuse [None]
  - Thrombotic thrombocytopenic purpura [None]
  - Hepatitis C [None]
  - Oedema peripheral [None]
